FAERS Safety Report 8029356-8 (Version None)
Quarter: 2012Q1

REPORT INFORMATION
  Report Type: 
  Country: None (occurrence: None)
  Receive Date: 20120106
  Receipt Date: 20111228
  Transmission Date: 20120608
  Serious: Yes (Other)
  Sender: FDA-Public Use
  Company Number: US-ELI_LILLY_AND_COMPANY-US201110001694

PATIENT
  Sex: Male

DRUGS (9)
  1. CARVEDILOL [Concomitant]
     Dosage: 6.25 MG, BID
  2. ACETAMINOPHEN AND HYDROCODONE BITARTRATE [Concomitant]
     Dosage: UNK, QD
  3. CITALOPRAM [Concomitant]
     Dosage: 20 UG, QD
  4. FORTEO [Suspect]
     Indication: OSTEOPOROSIS
     Dosage: 20 UG, QD
     Route: 058
     Dates: start: 20110422
  5. OMEPRAZOLE [Concomitant]
     Dosage: 20 MG, QD
  6. VITAMIN TAB [Concomitant]
     Dosage: UNK, QD
  7. FORTEO [Suspect]
     Dosage: 20 UG, QD
     Route: 058
  8. DIPHENOXYLATE [Concomitant]
     Indication: DIARRHOEA
     Dosage: UNK, PRN
  9. ASPIRIN [Concomitant]
     Dosage: 81 MG, QD

REACTIONS (2)
  - NEOPLASM [None]
  - ANAEMIA [None]
